FAERS Safety Report 4715306-6 (Version None)
Quarter: 2005Q3

REPORT INFORMATION
  Report Type: 
  Country: None (occurrence: None)
  Receive Date: 20050715
  Receipt Date: 20050707
  Transmission Date: 20060218
  Serious: Yes (Life-Threatening, Hospitalization, Congenital Anomaly)
  Sender: FDA-Public Use
  Company Number: FR-ABBOTT-05P-056-0305092-00

PATIENT
  Sex: Male

DRUGS (2)
  1. DEPAKENE [Suspect]
     Indication: DRUG EXPOSURE DURING PREGNANCY
  2. LAMOTRIGINE [Suspect]
     Indication: DRUG EXPOSURE DURING PREGNANCY

REACTIONS (5)
  - FACIAL DYSMORPHISM [None]
  - HYPOTHERMIA NEONATAL [None]
  - NEONATAL RESPIRATORY DISTRESS SYNDROME [None]
  - TALIPES [None]
  - TREMOR [None]
